FAERS Safety Report 9895566 (Version 1)
Quarter: 2014Q1

REPORT INFORMATION
  Report Type: Spontaneous
  Country: US (occurrence: US)
  Receive Date: 20140213
  Receipt Date: 20140213
  Transmission Date: 20141002
  Serious: No
  Sender: FDA-Public Use
  Company Number: US-BRISTOL-MYERS SQUIBB COMPANY-17293945

PATIENT
  Age: 70 Year
  Sex: Female
  Weight: 106.57 kg

DRUGS (1)
  1. ABATACEPT SUBQ INJECTION 125MG/ML [Suspect]
     Indication: RHEUMATOID ARTHRITIS
     Dosage: OFF ORENCIA ON OCT2012:LAST INJECTION WAS ON 15JAN2013
     Route: 058
     Dates: start: 201207

REACTIONS (3)
  - Clostridium difficile infection [Unknown]
  - Skin lesion [Recovered/Resolved]
  - Lip swelling [Unknown]
